FAERS Safety Report 8348864-3 (Version None)
Quarter: 2012Q2

REPORT INFORMATION
  Report Type: 
  Country: None (occurrence: None)
  Receive Date: 20120510
  Receipt Date: 20120427
  Transmission Date: 20120825
  Serious: Yes (Hospitalization)
  Sender: FDA-Public Use
  Company Number: FR-ALVOGEN-2012AL000037

PATIENT
  Age: 76 Year
  Sex: Female
  Weight: 54 kg

DRUGS (8)
  1. FURADANTIN [Suspect]
     Indication: DYSURIA
     Dates: start: 20120314, end: 20120315
  2. MONUROL [Concomitant]
     Indication: PRODUCT USED FOR UNKNOWN INDICATION
  3. AVLOCARDYL /00030001/ [Concomitant]
     Indication: PRODUCT USED FOR UNKNOWN INDICATION
  4. PROCORALAN [Concomitant]
     Indication: PALPITATIONS
  5. FURADANTIN [Suspect]
     Indication: ANTIBIOTIC PROPHYLAXIS
     Dates: start: 20120314, end: 20120315
  6. FURADANTIN [Suspect]
     Dates: start: 20120304, end: 20120310
  7. FURADANTIN [Suspect]
     Dates: start: 20120304, end: 20120310
  8. CIPRALAN [Concomitant]
     Indication: PRODUCT USED FOR UNKNOWN INDICATION
     Route: 048

REACTIONS (12)
  - KERATITIS [None]
  - CHILLS [None]
  - DRUG RASH WITH EOSINOPHILIA AND SYSTEMIC SYMPTOMS [None]
  - DERMATITIS EXFOLIATIVE [None]
  - EOSINOPHILIA [None]
  - PYREXIA [None]
  - PHARYNGITIS [None]
  - RASH GENERALISED [None]
  - HYPOTENSION [None]
  - CYTOLYTIC HEPATITIS [None]
  - PHARYNGEAL ERYTHEMA [None]
  - INFLAMMATION [None]
